FAERS Safety Report 4719854-4 (Version None)
Quarter: 2005Q3

REPORT INFORMATION
  Report Type: 
  Country: None (occurrence: None)
  Receive Date: 20050721
  Receipt Date: 20041213
  Transmission Date: 20060218
  Serious: No
  Sender: FDA-Public Use
  Company Number: US-GLAXOSMITHKLINE-A0537072A

PATIENT
  Sex: Female

DRUGS (2)
  1. AVANDIA [Suspect]
     Dosage: 8MG PER DAY
     Route: 048
     Dates: start: 20041101
  2. AMARYL [Concomitant]

REACTIONS (6)
  - BLOOD URINE PRESENT [None]
  - COUGH [None]
  - HEADACHE [None]
  - HEART RATE INCREASED [None]
  - SWELLING FACE [None]
  - URINE OUTPUT DECREASED [None]
